FAERS Safety Report 5787662-1 (Version None)
Quarter: 2008Q2

REPORT INFORMATION
  Report Type: 
  Country: None (occurrence: None)
  Receive Date: 20080625
  Receipt Date: 20080619
  Transmission Date: 20081010
  Serious: Yes (Disabling)
  Sender: FDA-Public Use
  Company Number: US-KINGPHARMUSA00001-K200800711

PATIENT

DRUGS (5)
  1. ALTACE [Suspect]
     Dosage: 10 MG, QD
     Route: 048
     Dates: start: 20040101
  2. PREDNISONE [Suspect]
     Indication: PEMPHIGOID
  3. TOPROL-XL [Concomitant]
  4. ZOCOR [Concomitant]
  5. PROCARDIA [Concomitant]

REACTIONS (8)
  - CATARACT [None]
  - DEMENTIA [None]
  - DIABETES MELLITUS [None]
  - GLAUCOMA [None]
  - NEOPLASM MALIGNANT [None]
  - OSTEOPOROSIS [None]
  - PEMPHIGOID [None]
  - PRURITUS [None]
